FAERS Safety Report 4642095-6 (Version None)
Quarter: 2005Q2

REPORT INFORMATION
  Report Type: 
  Country: None (occurrence: None)
  Receive Date: 20050420
  Receipt Date: 20050406
  Transmission Date: 20051028
  Serious: Yes (Other)
  Sender: FDA-Public Use
  Company Number: 2004224163US

PATIENT
  Age: 66 Year
  Sex: Female
  Weight: 68.0396 kg

DRUGS (6)
  1. PROVERA [Suspect]
     Indication: HORMONE REPLACEMENT THERAPY
     Dates: start: 19740101, end: 19840101
  2. CONJUGATED ESTROGENS [Suspect]
     Indication: HORMONE REPLACEMENT THERAPY
     Dates: start: 19740101, end: 19840101
  3. PROVELLA (ESTROGENS CONJUGATED, MEDROXYPROGESTERONE ACETATE) [Suspect]
     Indication: HORMONE REPLACEMENT THERAPY
     Dates: start: 19840101, end: 19970627
  4. TRANDOLAPRIL (TRANDOLAPRIL) [Concomitant]
  5. PHENTERMINE [Concomitant]
  6. DYAZIDE (HYDROCHLOCOTHIAZIDE, TRIAMTERENE) [Concomitant]

REACTIONS (1)
  - BREAST CANCER RECURRENT [None]
